FAERS Safety Report 17306990 (Version 1)
Quarter: 2020Q1

REPORT INFORMATION
  Report Type: Spontaneous
  Country: US (occurrence: US)
  Receive Date: 20200106
  Receipt Date: 20200106
  Transmission Date: 20200409
  Serious: No
  Sender: FDA-Public Use
  Company Number: None

PATIENT
  Age: 63 Year
  Sex: Male

DRUGS (1)
  1. OXALIPLATIN (OXALIPLATIN 200MG/VIL(PF) INJ) [Suspect]
     Active Substance: OXALIPLATIN
     Indication: CHEMOTHERAPY
     Route: 042
     Dates: start: 20191031, end: 20191031

REACTIONS (8)
  - Infusion related reaction [None]
  - Hypoxia [None]
  - Hyperhidrosis [None]
  - Pallor [None]
  - Confusional state [None]
  - Diarrhoea [None]
  - Hypotension [None]
  - Tachycardia [None]

NARRATIVE: CASE EVENT DATE: 20191031
